FAERS Safety Report 17368024 (Version 3)
Quarter: 2020Q3

REPORT INFORMATION
  Report Type: Report from Study
  Country: BE (occurrence: BE)
  Receive Date: 20200204
  Receipt Date: 20200721
  Transmission Date: 20201105
  Serious: Yes (Hospitalization)
  Sender: FDA-Public Use
  Company Number: BE-SEATTLE GENETICS-2020SGN00233

PATIENT
  Age: 23 Year
  Sex: Female
  Weight: 65 kg

DRUGS (6)
  1. TISOTUMAB VEDOTIN. [Suspect]
     Active Substance: TISOTUMAB VEDOTIN
     Indication: PRODUCT USED FOR UNKNOWN INDICATION
     Dosage: 64.17 MILLIGRAM
     Route: 042
     Dates: start: 20191220, end: 20191220
  2. ADRIAMYCIN [Suspect]
     Active Substance: DOXORUBICIN HYDROCHLORIDE
     Indication: HODGKIN^S DISEASE
     Dosage: 44.50 MILLIGRAM, Q2WEEKS
     Route: 042
     Dates: start: 20190802
  3. VINBLASTINE [Suspect]
     Active Substance: VINBLASTINE
     Indication: HODGKIN^S DISEASE
     Dosage: 10.70 MILLIGRAM, Q2WEEKS
     Route: 042
     Dates: start: 20190802
  4. DACARBAZINE. [Suspect]
     Active Substance: DACARBAZINE
     Indication: HODGKIN^S DISEASE
     Dosage: 668 MILLIGRAM, Q2WEEKS
     Route: 042
     Dates: start: 20190802
  5. SGN WHO DEXAMETHASONE [Suspect]
     Active Substance: DEXAMETHASONE
     Indication: HODGKIN^S DISEASE
     Dosage: 4 MILLIGRAM, Q2WEEKS
     Route: 042
     Dates: start: 20190802
  6. BRENTUXIMAB VEDOTIN [Suspect]
     Active Substance: BRENTUXIMAB VEDOTIN
     Indication: HODGKIN^S DISEASE
     Dosage: 81.36 MILLIGRAM, Q2WEEKS
     Route: 042
     Dates: start: 20190802, end: 20200117

REACTIONS (3)
  - Stomatitis [Recovered/Resolved]
  - Oesophagitis [Recovered/Resolved]
  - Gastrointestinal inflammation [Recovered/Resolved]

NARRATIVE: CASE EVENT DATE: 20200110
